FAERS Safety Report 19219904 (Version 2)
Quarter: 2021Q2

REPORT INFORMATION
  Report Type: Spontaneous
  Country: US (occurrence: US)
  Receive Date: 20210505
  Receipt Date: 20210608
  Transmission Date: 20210717
  Serious: Yes (Hospitalization, Other)
  Sender: FDA-Public Use
  Company Number: US-JNJFOC-20210455369

PATIENT
  Age: 41 Year
  Sex: Female
  Weight: 61.23 kg

DRUGS (3)
  1. KLONOPIN [Concomitant]
     Active Substance: CLONAZEPAM
  2. TOPIRAMATE. [Suspect]
     Active Substance: TOPIRAMATE
     Indication: MIGRAINE PROPHYLAXIS
     Dosage: 4 DOSES
     Route: 048
  3. COVID?19 VACCINE NOS. [Suspect]
     Active Substance: COVID-19 VACCINE NOS
     Indication: INFECTION PROPHYLAXIS
     Route: 065

REACTIONS (7)
  - Blood pressure increased [Not Recovered/Not Resolved]
  - Tobacco user [Not Recovered/Not Resolved]
  - Hospitalisation [Unknown]
  - Drug ineffective [Unknown]
  - Cerebrovascular accident [Not Recovered/Not Resolved]
  - Vomiting [Not Recovered/Not Resolved]
  - Weight decreased [Not Recovered/Not Resolved]
